FAERS Safety Report 5649801-2 (Version None)
Quarter: 2008Q1

REPORT INFORMATION
  Report Type: 
  Country: None (occurrence: None)
  Receive Date: 20080303
  Receipt Date: 20080219
  Transmission Date: 20080703
  Serious: Yes (Death, Hospitalization, Other)
  Sender: FDA-Public Use
  Company Number: 2008SP003691

PATIENT
  Age: 53 Year
  Sex: Male

DRUGS (2)
  1. REBETOL [Suspect]
     Indication: HEPATITIS C
     Dosage: PO
     Route: 048
     Dates: start: 20070920
  2. PEG-INTRON [Suspect]
     Indication: HEPATITIS C
     Dates: start: 20070920

REACTIONS (17)
  - ABDOMINAL PAIN UPPER [None]
  - BACK PAIN [None]
  - BACTERIAL INFECTION [None]
  - BLOOD DISORDER [None]
  - BLOOD POTASSIUM INCREASED [None]
  - BLOOD PRESSURE DECREASED [None]
  - BLOOD SODIUM DECREASED [None]
  - BRONCHITIS [None]
  - CEREBROVASCULAR ACCIDENT [None]
  - COMA [None]
  - HEPATIC CIRRHOSIS [None]
  - MOVEMENT DISORDER [None]
  - MUSCULAR WEAKNESS [None]
  - ORAL INTAKE REDUCED [None]
  - PHARYNGOLARYNGEAL PAIN [None]
  - RENAL FAILURE [None]
  - SCIATICA [None]
